FAERS Safety Report 6046152-1 (Version None)
Quarter: 2009Q1

REPORT INFORMATION
  Report Type: 
  Country: None (occurrence: None)
  Receive Date: 20090121
  Receipt Date: 20090121
  Transmission Date: 20090719
  Serious: No
  Sender: FDA-Public Use
  Company Number: None

PATIENT
  Age: 48 Year
  Sex: Female
  Weight: 85.28 kg

DRUGS (1)
  1. BACITRACIN/LIDOCAINE/NEOMYCIN/POLYMYXIN [Suspect]
     Indication: CELLULITIS
     Dosage: TOP
     Route: 061
     Dates: start: 20081222, end: 20090102

REACTIONS (1)
  - ERYTHEMA [None]
